FAERS Safety Report 17641198 (Version 3)
Quarter: 2020Q2

REPORT INFORMATION
  Report Type: Report from Study
  Country: US (occurrence: US)
  Receive Date: 20200407
  Receipt Date: 20200529
  Transmission Date: 20200713
  Serious: No
  Sender: FDA-Public Use
  Company Number: NVSC2020US094298

PATIENT
  Age: 38 Year
  Sex: Female

DRUGS (2)
  1. COSENTYX [Suspect]
     Active Substance: SECUKINUMAB
     Dosage: UNK
     Route: 065
     Dates: start: 20200403
  2. COSENTYX [Suspect]
     Active Substance: SECUKINUMAB
     Indication: PRODUCT USED FOR UNKNOWN INDICATION
     Dosage: UNK
     Route: 065

REACTIONS (8)
  - Tongue disorder [Unknown]
  - Oropharyngeal pain [Unknown]
  - Nodule [Unknown]
  - Dysphagia [Unknown]
  - Urticaria [Unknown]
  - Hypersensitivity [Unknown]
  - Throat irritation [Unknown]
  - Swelling [Unknown]

NARRATIVE: CASE EVENT DATE: 20200404
